FAERS Safety Report 18784555 (Version 1)
Quarter: 2021Q1

REPORT INFORMATION
  Report Type: Spontaneous
  Country: US (occurrence: US)
  Receive Date: 20210125
  Receipt Date: 20210125
  Transmission Date: 20210419
  Serious: No
  Sender: FDA-Public Use
  Company Number: US-ROCHE-2515308

PATIENT
  Sex: Female
  Weight: 65.83 kg

DRUGS (2)
  1. RITUXAN [Suspect]
     Active Substance: RITUXIMAB
     Indication: MYASTHENIA GRAVIS
     Route: 065
     Dates: start: 201803
  2. OCREVUS [Suspect]
     Active Substance: OCRELIZUMAB
     Indication: MYASTHENIA GRAVIS
     Dosage: SHE RECEIVED LAST DOSE OF OCRELIZUMAB ON 26/JUN/2019. THIS WAS THE 3RD DOSE AND SHE RECEIVED 600 MG
     Route: 065

REACTIONS (4)
  - Pregnancy [Unknown]
  - Off label use [Unknown]
  - Intentional product use issue [Unknown]
  - No adverse event [Unknown]
